FAERS Safety Report 21822603 (Version 2)
Quarter: 2023Q1

REPORT INFORMATION
  Report Type: Spontaneous
  Country: TR (occurrence: TR)
  Receive Date: 20230105
  Receipt Date: 20230204
  Transmission Date: 20230417
  Serious: Yes (Other)
  Sender: FDA-Public Use
  Company Number: TR-CELLTRION INC.-2022TR022001

PATIENT

DRUGS (4)
  1. RITUXIMAB [Suspect]
     Active Substance: RITUXIMAB
     Indication: Encephalitis autoimmune
     Dosage: TREATED TWICE 6 MONTHS APART
  2. RITUXIMAB [Suspect]
     Active Substance: RITUXIMAB
     Dosage: TREATED TWICE 6 MONTHS APART
  3. RITUXIMAB [Suspect]
     Active Substance: RITUXIMAB
     Dosage: UNK
  4. METHYLPREDNISOLONE [Suspect]
     Active Substance: METHYLPREDNISOLONE
     Indication: Encephalitis autoimmune
     Dosage: 1 G/DAY

REACTIONS (2)
  - Encephalitis autoimmune [Unknown]
  - Drug effective for unapproved indication [Unknown]
